FAERS Safety Report 8462583-4 (Version None)
Quarter: 2012Q2

REPORT INFORMATION
  Report Type: 
  Country: None (occurrence: None)
  Receive Date: 20120625
  Receipt Date: 20120504
  Transmission Date: 20120825
  Serious: No
  Sender: FDA-Public Use
  Company Number: US-BAUSCH-2012BL001631

PATIENT
  Age: 21 Year
  Sex: Male

DRUGS (9)
  1. BESIVANCE [Suspect]
     Indication: OFF LABEL USE
     Route: 047
     Dates: start: 20120202, end: 20120202
  2. BESIVANCE [Suspect]
  3. PRED FORTE [Concomitant]
     Indication: POSTOPERATIVE CARE
     Route: 047
     Dates: start: 20120202
  4. BROMFENAC [Concomitant]
     Indication: POSTOPERATIVE CARE
     Route: 047
     Dates: start: 20120202
  5. BESIVANCE [Suspect]
     Indication: POSTOPERATIVE CARE
     Route: 047
     Dates: start: 20120202, end: 20120202
  6. PRED FORTE [Concomitant]
     Indication: PHOTOREFRACTIVE KERATECTOMY
     Route: 047
     Dates: start: 20120202, end: 20120202
  7. FML FORTE [Concomitant]
     Indication: POSTOPERATIVE CARE
     Route: 047
  8. BESIVANCE [Suspect]
  9. BROMFENAC [Concomitant]
     Indication: PHOTOREFRACTIVE KERATECTOMY
     Route: 047
     Dates: start: 20120202, end: 20120202

REACTIONS (2)
  - CORNEAL DISORDER [None]
  - IMPAIRED HEALING [None]
